FAERS Safety Report 19222700 (Version 2)
Quarter: 2021Q2

REPORT INFORMATION
  Report Type: Report from Study
  Country: BE (occurrence: BE)
  Receive Date: 20210505
  Receipt Date: 20210513
  Transmission Date: 20210717
  Serious: Yes (Death, Hospitalization)
  Sender: FDA-Public Use
  Company Number: BE-PFIZER INC-2021486248

PATIENT
  Sex: Male

DRUGS (1)
  1. TAFAMIDIS [Suspect]
     Active Substance: TAFAMIDIS MEGLUMINE
     Dosage: DOSE 1, UNIT 40, DAILY
     Route: 048
     Dates: start: 20200921, end: 20201022

REACTIONS (6)
  - Death [Fatal]
  - Drug intolerance [Unknown]
  - Malaise [Unknown]
  - Hypotension [Unknown]
  - General physical health deterioration [Recovered/Resolved]
  - Asthenia [Unknown]

NARRATIVE: CASE EVENT DATE: 20210223
